FAERS Safety Report 6721465-6 (Version None)
Quarter: 2010Q2

REPORT INFORMATION
  Report Type: 
  Country: None (occurrence: None)
  Receive Date: 20100510
  Receipt Date: 20100429
  Transmission Date: 20101027
  Serious: Yes (Other)
  Sender: FDA-Public Use
  Company Number: 2010SP024017

PATIENT
  Age: 21 Year
  Sex: Female
  Weight: 63 kg

DRUGS (2)
  1. IMPLANON [Suspect]
     Indication: CONTRACEPTION
     Dosage: 68 MG; ;SBDE, 68 MG; ;SBDE
     Route: 059
     Dates: start: 20070626, end: 20100429
  2. IMPLANON [Suspect]
     Indication: CONTRACEPTION
     Dosage: 68 MG; ;SBDE, 68 MG; ;SBDE
     Route: 059
     Dates: start: 20100429

REACTIONS (7)
  - ABORTION SPONTANEOUS [None]
  - AMENORRHOEA [None]
  - CHEST INJURY [None]
  - CONTUSION [None]
  - NON-CARDIAC CHEST PAIN [None]
  - PREGNANCY [None]
  - VAGINAL HAEMORRHAGE [None]
